FAERS Safety Report 5935591-2 (Version None)
Quarter: 2008Q4

REPORT INFORMATION
  Report Type: 
  Country: None (occurrence: None)
  Receive Date: 20081030
  Receipt Date: 20081024
  Transmission Date: 20090506
  Serious: Yes (Other)
  Sender: FDA-Public Use
  Company Number: B0537873A

PATIENT
  Age: 44 Year
  Sex: Female

DRUGS (10)
  1. AUGMENTIN '125' [Suspect]
     Indication: SINUSITIS
     Dosage: 375MG THREE TIMES PER DAY
     Route: 048
     Dates: start: 20080916, end: 20080916
  2. MUCODYNE [Suspect]
     Indication: ACUTE SINUSITIS
     Dosage: 500MG THREE TIMES PER DAY
     Route: 048
     Dates: start: 20080916, end: 20080916
  3. VITAMEDIN [Suspect]
     Indication: DRUG USE FOR UNKNOWN INDICATION
     Route: 048
  4. MAPROTILINE HYDROCHLORIDE [Suspect]
     Indication: DRUG USE FOR UNKNOWN INDICATION
     Route: 048
  5. APLACE [Suspect]
     Indication: GASTRITIS
     Dosage: 100MG THREE TIMES PER DAY
     Route: 048
     Dates: start: 20080916, end: 20080916
  6. DEPAS [Concomitant]
     Indication: DRUG USE FOR UNKNOWN INDICATION
     Route: 048
  7. PREMARIN [Concomitant]
     Indication: DRUG USE FOR UNKNOWN INDICATION
  8. MOHRUS TAPE [Concomitant]
     Indication: DRUG USE FOR UNKNOWN INDICATION
  9. MERISLON [Concomitant]
     Indication: DRUG USE FOR UNKNOWN INDICATION
     Route: 048
  10. VONTROL [Concomitant]
     Indication: DRUG USE FOR UNKNOWN INDICATION
     Route: 048

REACTIONS (4)
  - ANAPHYLACTOID REACTION [None]
  - COUGH [None]
  - DYSPNOEA [None]
  - WHEEZING [None]
